FAERS Safety Report 15169511 (Version 1)
Quarter: 2018Q3

REPORT INFORMATION
  Report Type: Spontaneous
  Country: US (occurrence: US)
  Receive Date: 20180720
  Receipt Date: 20180720
  Transmission Date: 20181010
  Serious: No
  Sender: FDA-Public Use
  Company Number: US-ELI_LILLY_AND_COMPANY-US201807006408

PATIENT
  Sex: Male

DRUGS (3)
  1. HUMALOG KWIKPEN [Suspect]
     Active Substance: INSULIN LISPRO
     Dosage: 18 U, OTHER, BEFORE EACH MEAL
     Route: 065
  2. HUMALOG KWIKPEN [Suspect]
     Active Substance: INSULIN LISPRO
     Indication: PRODUCT USED FOR UNKNOWN INDICATION
     Dosage: 36 U, OTHER, BEFORE EACH MEAL
     Route: 065
     Dates: start: 201607
  3. HUMALOG KWIKPEN [Suspect]
     Active Substance: INSULIN LISPRO
     Dosage: 36 U, OTHER, BEFORE EACH MEAL
     Route: 065

REACTIONS (2)
  - Glycosylated haemoglobin increased [Unknown]
  - Intentional product misuse [Unknown]
